FAERS Safety Report 7379800-4 (Version None)
Quarter: 2011Q1

REPORT INFORMATION
  Report Type: 
  Country: None (occurrence: None)
  Receive Date: 20110329
  Receipt Date: 20110317
  Transmission Date: 20110831
  Serious: Yes (Hospitalization)
  Sender: FDA-Public Use
  Company Number: JP-JNJFOC-20101208785

PATIENT
  Sex: Female
  Weight: 49 kg

DRUGS (11)
  1. SEROTONE [Concomitant]
     Indication: PROPHYLAXIS
     Route: 042
  2. PYDOXAL [Concomitant]
     Indication: PROPHYLAXIS
     Dosage: DOSAGE FORM: ENTERIC COATING DRUG
     Route: 048
  3. DOXORUBICIN HCL [Suspect]
     Dosage: CYCLE 6
     Route: 042
  4. DECADRON [Concomitant]
     Indication: PROPHYLAXIS
     Route: 048
  5. DOXORUBICIN HCL [Suspect]
     Dosage: CYCLE 2
     Route: 042
  6. DOXORUBICIN HCL [Suspect]
     Dosage: CYCLE 4
     Route: 042
  7. PRIMPERAN TAB [Concomitant]
     Indication: PROPHYLAXIS
     Route: 048
  8. DOXORUBICIN HCL [Suspect]
     Indication: OVARIAN CANCER RECURRENT
     Dosage: CYCLE 1
     Route: 042
  9. DOXORUBICIN HCL [Suspect]
     Dosage: CYCLE 3
     Route: 042
  10. DECADRON [Concomitant]
     Route: 042
  11. DOXORUBICIN HCL [Suspect]
     Dosage: CYCLE 5
     Route: 042

REACTIONS (2)
  - GASTROINTESTINAL PAIN [None]
  - STOMATITIS [None]
